FAERS Safety Report 5909518-3 (Version None)
Quarter: 2008Q4

REPORT INFORMATION
  Report Type: 
  Country: None (occurrence: None)
  Receive Date: 20081002
  Receipt Date: 20080924
  Transmission Date: 20090506
  Serious: Yes (Other)
  Sender: FDA-Public Use
  Company Number: 2008SP019517

PATIENT
  Sex: Female

DRUGS (2)
  1. DESLORATADINE [Suspect]
     Indication: PRURITUS
     Dosage: PO
     Route: 048
     Dates: start: 20080919
  2. ZYERTEC [Concomitant]

REACTIONS (3)
  - DRUG INEFFECTIVE [None]
  - LOCALISED OEDEMA [None]
  - SWELLING FACE [None]
